FAERS Safety Report 7819302-1 (Version None)
Quarter: 2011Q4

REPORT INFORMATION
  Report Type: 
  Country: None (occurrence: None)
  Receive Date: 20111018
  Receipt Date: 20101210
  Transmission Date: 20120403
  Serious: No
  Sender: FDA-Public Use
  Company Number: US-ASTRAZENECA-2010SE59022

PATIENT
  Sex: Female
  Weight: 63.5 kg

DRUGS (7)
  1. CYCLOBENZAPRINE [Concomitant]
     Indication: MUSCLE TIGHTNESS
  2. LEXAPRO [Concomitant]
     Indication: ANXIETY
  3. SYMBICORT [Suspect]
     Dosage: 160/4.5 UG TWICE A DAY
     Route: 055
  4. BUSPAR [Concomitant]
     Indication: ANXIETY
  5. SYMBICORT [Suspect]
     Dosage: 160/4.5 UG TWICE A DAY
     Route: 055
     Dates: start: 20101116
  6. VERAMYST [Suspect]
     Route: 065
     Dates: end: 20101205
  7. DEXILANT [Concomitant]
     Indication: ANXIETY

REACTIONS (5)
  - COUGH [None]
  - INCREASED UPPER AIRWAY SECRETION [None]
  - DRUG DOSE OMISSION [None]
  - WHEEZING [None]
  - CHEST PAIN [None]
